FAERS Safety Report 10038032 (Version 1)
Quarter: 2014Q1

REPORT INFORMATION
  Report Type: Spontaneous
  Country: US (occurrence: None)
  Receive Date: 20140306
  Receipt Date: 20140306
  Transmission Date: 20141002
  Serious: Yes (Other)
  Sender: FDA-Public Use
  Company Number: 163-21880-13082723

PATIENT
  Sex: Female

DRUGS (6)
  1. REVLIMID (LENALIDOMIDE) (15 MILLIGRAM, CAPSULES) [Suspect]
     Indication: PLASMA CELL MYELOMA
     Route: 048
     Dates: start: 20111208
  2. SYNTHROID (LEVOTHYROXINE SODIUM) [Concomitant]
  3. ENOXAPARIN (ENOXAPARIN) [Concomitant]
  4. DEXAMETHASONE (DEXAMETHASONE) [Concomitant]
  5. ZOMETA (ZOLEDRONIC ACID) [Concomitant]
  6. VELCADE (BORTEZOMIB) [Concomitant]

REACTIONS (1)
  - Deep vein thrombosis [None]
